FAERS Safety Report 14962610 (Version 4)
Quarter: 2020Q4

REPORT INFORMATION
  Report Type: Spontaneous
  Country: US (occurrence: US)
  Receive Date: 20180601
  Receipt Date: 20201019
  Transmission Date: 20210113
  Serious: No
  Sender: FDA-Public Use
  Company Number: US-PFIZER INC-2018223485

PATIENT
  Age: 60 Year
  Sex: Male

DRUGS (1)
  1. METHOTREXATE SODIUM. [Suspect]
     Active Substance: METHOTREXATE SODIUM
     Dosage: UNK
     Dates: start: 201310, end: 201703

REACTIONS (1)
  - Drug hypersensitivity [Unknown]
